FAERS Safety Report 14510922 (Version 1)
Quarter: 2018Q1

REPORT INFORMATION
  Report Type: Spontaneous
  Country: US (occurrence: US)
  Receive Date: 20180209
  Receipt Date: 20180209
  Transmission Date: 20180509
  Serious: Yes (Life-Threatening, Hospitalization, Disabling)
  Sender: FDA-Public Use
  Company Number: None

PATIENT
  Age: 49 Year
  Sex: Female
  Weight: 66.22 kg

DRUGS (7)
  1. LACTOLOSE [Concomitant]
  2. GABAPENTIN 600MG TABLET [Suspect]
     Active Substance: GABAPENTIN
     Indication: PAIN
     Route: 048
     Dates: start: 20180127, end: 20180128
  3. LINZESS [Concomitant]
     Active Substance: LINACLOTIDE
  4. MAGNESIUM CITRATE. [Concomitant]
     Active Substance: MAGNESIUM CITRATE
  5. AMITIZA [Concomitant]
     Active Substance: LUBIPROSTONE
  6. SLOW BOWEL TRANSIT TEST COLON INJURED BY TOP SECRET EQUIPMENT BY CHUCK LEROY LONGER BEAM/NASA 20132 [Concomitant]
  7. FLONASE [Concomitant]
     Active Substance: FLUTICASONE PROPIONATE

REACTIONS (16)
  - Heart rate increased [None]
  - Pain in extremity [None]
  - Erythema [None]
  - Ocular hyperaemia [None]
  - Cardiac disorder [None]
  - Abdominal pain upper [None]
  - Constipation [None]
  - Flushing [None]
  - Blood pressure increased [None]
  - Nausea [None]
  - Anxiety [None]
  - Hepatic enzyme increased [None]
  - Chest pain [None]
  - Ileus [None]
  - Hyperhidrosis [None]
  - Cold sweat [None]

NARRATIVE: CASE EVENT DATE: 20180127
